FAERS Safety Report 7671915-6 (Version None)
Quarter: 2011Q3

REPORT INFORMATION
  Report Type: 
  Country: None (occurrence: None)
  Receive Date: 20110809
  Receipt Date: 20110805
  Transmission Date: 20111222
  Serious: Yes (Death, Hospitalization)
  Sender: FDA-Public Use
  Company Number: US-GLAXOSMITHKLINE-A0903515A

PATIENT
  Age: 56 Year
  Sex: Male

DRUGS (1)
  1. AVANDIA [Suspect]
     Indication: DIABETES MELLITUS
     Route: 048
     Dates: start: 20030601, end: 20070601

REACTIONS (8)
  - ACUTE MYOCARDIAL INFARCTION [None]
  - STENT PLACEMENT [None]
  - CORONARY ARTERY DISEASE [None]
  - TROPONIN I INCREASED [None]
  - CHEST PAIN [None]
  - CATHETERISATION CARDIAC [None]
  - DYSPNOEA [None]
  - FATIGUE [None]
